FAERS Safety Report 12532244 (Version 2)
Quarter: 2016Q3

REPORT INFORMATION
  Report Type: Spontaneous
  Country: US (occurrence: US)
  Receive Date: 20160706
  Receipt Date: 20160721
  Transmission Date: 20161109
  Serious: Yes (Hospitalization)
  Sender: FDA-Public Use
  Company Number: US-ACTELION-A-NJ2016-138568

PATIENT
  Age: 52 Year
  Sex: Female

DRUGS (1)
  1. VELETRI [Suspect]
     Active Substance: EPOPROSTENOL
     Indication: PULMONARY ARTERIAL HYPERTENSION
     Dosage: 120 NG/KG, PER MIN
     Route: 042
     Dates: start: 20111122

REACTIONS (4)
  - Catheter site erythema [Unknown]
  - Catheter management [Unknown]
  - Catheter site swelling [Unknown]
  - Catheter site infection [Unknown]
